FAERS Safety Report 7723657-6 (Version None)
Quarter: 2011Q3

REPORT INFORMATION
  Report Type: 
  Country: None (occurrence: None)
  Receive Date: 20110901
  Receipt Date: 20110829
  Transmission Date: 20111222
  Serious: Yes (Death)
  Sender: FDA-Public Use
  Company Number: US-MYLANLABS-2009S1018936

PATIENT
  Age: 36 Year
  Sex: Female
  Weight: 65 kg

DRUGS (8)
  1. ALPRAZOLAM [Suspect]
  2. OXYCODONE HCL AND ACETAMINOPHEN [Concomitant]
     Indication: BREAKTHROUGH PAIN
  3. FENTANYL-100 [Suspect]
     Indication: BACK PAIN
     Dosage: CHANGED Q3D
     Route: 062
  4. METHADONE HCL [Suspect]
  5. CLONAZEPAM [Concomitant]
  6. CARISOPRODOL [Concomitant]
     Indication: MUSCLE SPASMS
  7. FLUOXETINE [Concomitant]
  8. BUSPIRONE [Concomitant]

REACTIONS (1)
  - TOXICITY TO VARIOUS AGENTS [None]
